FAERS Safety Report 7938978-1 (Version None)
Quarter: 2011Q4

REPORT INFORMATION
  Report Type: 
  Country: None (occurrence: None)
  Receive Date: 20111124
  Receipt Date: 20111122
  Transmission Date: 20120403
  Serious: No
  Sender: FDA-Public Use
  Company Number: US-PFIZER INC-2011286084

PATIENT
  Sex: Female
  Weight: 69 kg

DRUGS (20)
  1. THEOPHYLLINE [Concomitant]
     Indication: CHRONIC OBSTRUCTIVE PULMONARY DISEASE
     Dosage: 200 MG, UNK
  2. CITALOPRAM [Concomitant]
     Dosage: 40 MG, UNK
  3. ASCORBIC ACID [Concomitant]
     Dosage: UNK
  4. VITAMIN D [Concomitant]
     Dosage: UNK
  5. XANAX [Concomitant]
     Indication: ANXIETY
     Dosage: 0.5 MG, UNK
  6. DARIFENACIN [Concomitant]
     Indication: HYPERTONIC BLADDER
     Dosage: 7.5 MG, UNK
  7. LAMOTRIGINE [Concomitant]
     Dosage: 25 MG, UNK
  8. CHANTIX [Suspect]
     Indication: SMOKING CESSATION THERAPY
     Dosage: 0.5 MG, 1X/DAY
     Route: 048
     Dates: start: 20111103
  9. CHANTIX [Suspect]
     Dosage: UNK
     Route: 048
  10. LOSARTAN [Concomitant]
     Indication: HYPERTENSION
     Dosage: 25 MG, 1X/DAY
  11. ARICEPT [Concomitant]
     Dosage: 10 MG, UNK
  12. XANAX [Concomitant]
     Indication: BIPOLAR DISORDER
  13. LUTEIN [Concomitant]
     Indication: CATARACT
     Dosage: UNK
  14. OMEPRAZOLE [Concomitant]
     Indication: FLATULENCE
  15. LEVOXYL [Concomitant]
     Indication: HYPOTHYROIDISM
     Dosage: 88 UG, 1X/DAY
  16. OMEPRAZOLE [Concomitant]
     Indication: GASTROOESOPHAGEAL REFLUX DISEASE
     Dosage: 20 MG, 1X/DAY
  17. TOPIRAMATE [Concomitant]
     Dosage: 50 MG, UNK
  18. BENZONATATE [Concomitant]
     Indication: CHRONIC OBSTRUCTIVE PULMONARY DISEASE
     Dosage: 200 MG, 1X/DAY
  19. TRAMADOL [Concomitant]
     Indication: PAIN
     Dosage: UNK
  20. IRON [Concomitant]
     Dosage: UNK

REACTIONS (3)
  - ANXIETY [None]
  - FATIGUE [None]
  - SOMNOLENCE [None]
